FAERS Safety Report 16370468 (Version 1)
Quarter: 2019Q2

REPORT INFORMATION
  Report Type: Spontaneous
  Country: IT (occurrence: IT)
  Receive Date: 20190530
  Receipt Date: 20190530
  Transmission Date: 20190711
  Serious: Yes (Hospitalization)
  Sender: FDA-Public Use
  Company Number: IT-ACCORD-129934

PATIENT
  Age: 84 Year
  Sex: Male

DRUGS (10)
  1. TRIATEC [Concomitant]
  2. JANUMET [Concomitant]
     Active Substance: METFORMIN HYDROCHLORIDE\SITAGLIPTIN PHOSPHATE
  3. LASIX [Concomitant]
     Active Substance: FUROSEMIDE
  4. DUOPLAVIN [Suspect]
     Active Substance: ASPIRIN\CLOPIDOGREL
     Indication: ANTIPLATELET THERAPY
     Dosage: STRENGTH :  75 MG / 75 MG
     Route: 048
     Dates: start: 20160101, end: 20190413
  5. EBIXA [Concomitant]
     Active Substance: MEMANTINE HYDROCHLORIDE
     Dosage: STRENGTH : 10 MG
  6. DIAMICRON [Concomitant]
     Active Substance: GLICLAZIDE
  7. XATRAL [Concomitant]
     Active Substance: ALFUZOSIN
  8. QUETIAPINE. [Suspect]
     Active Substance: QUETIAPINE
     Indication: ANTIDEPRESSANT THERAPY
     Route: 048
     Dates: start: 20160101
  9. TRITTICO [Concomitant]
     Active Substance: TRAZODONE HYDROCHLORIDE
  10. CARDICOR [Concomitant]
     Active Substance: BISOPROLOL

REACTIONS (1)
  - Melaena [Recovering/Resolving]

NARRATIVE: CASE EVENT DATE: 20190413
